FAERS Safety Report 4919103-8 (Version None)
Quarter: 2006Q1

REPORT INFORMATION
  Report Type: 
  Country: None (occurrence: None)
  Receive Date: 20060216
  Receipt Date: 20051008
  Transmission Date: 20060701
  Serious: Yes (Other)
  Sender: FDA-Public Use
  Company Number: 2005141267

PATIENT
  Age: 48 Year
  Sex: Female
  Weight: 67.1324 kg

DRUGS (2)
  1. DETROL [Suspect]
     Indication: INCONTINENCE
     Dates: start: 19990101
  2. DETROL LA [Suspect]
     Indication: URGE INCONTINENCE
     Dosage: 4 MG (4 MG, 1 IN 1 D), ORAL
     Route: 048
     Dates: start: 20051006

REACTIONS (5)
  - DISEASE RECURRENCE [None]
  - GASTROOESOPHAGEAL REFLUX DISEASE [None]
  - STOMACH DISCOMFORT [None]
  - STRESS [None]
  - URGE INCONTINENCE [None]
